FAERS Safety Report 10567583 (Version 1)
Quarter: 2014Q4

REPORT INFORMATION
  Report Type: Spontaneous
  Country: US (occurrence: US)
  Receive Date: 20141106
  Receipt Date: 20141106
  Transmission Date: 20150529
  Serious: No
  Sender: FDA-Public Use
  Company Number: US-BIOGENIDEC-2014BI113120

PATIENT
  Age: 32 Year
  Sex: Female
  Weight: 45 kg

DRUGS (2)
  1. TECFIDERA [Suspect]
     Active Substance: DIMETHYL FUMARATE
     Indication: MULTIPLE SCLEROSIS
     Route: 048
     Dates: start: 201410
  2. TECFIDERA [Suspect]
     Active Substance: DIMETHYL FUMARATE
     Indication: MULTIPLE SCLEROSIS
     Route: 048
     Dates: start: 20140317

REACTIONS (5)
  - Pruritus [Recovered/Resolved]
  - Flushing [Recovered/Resolved]
  - Rash papular [Recovered/Resolved]
  - Anxiety [Unknown]
  - Restlessness [Recovered/Resolved]

NARRATIVE: CASE EVENT DATE: 20141024
